FAERS Safety Report 8341059 (Version 2)
Quarter: 2012Q4

REPORT INFORMATION
  Report Type: 
  Country: US (occurrence: US)
  Receive Date: 20120118
  Receipt Date: 20120917
  Transmission Date: 20130627
  Serious: No
  Sender: FDA-Public Use
  Company Number: US-PFIZER INC-2012010089

PATIENT
  Age: 50 Year
  Sex: Female
  Weight: 56.7 kg

DRUGS (3)
  1. ESTRADIOL [Suspect]
     Indication: HORMONE REPLACEMENT THERAPY
     Dosage: UNK, 1x/day
     Route: 048
     Dates: start: 2010, end: 2010
  2. ESTRADIOL [Suspect]
     Dosage: UNK
     Dates: start: 201109
  3. ARMOUR THYROID [Concomitant]
     Indication: HYPOTHYROIDISM
     Dosage: UNK

REACTIONS (3)
  - Nausea [Unknown]
  - Abdominal discomfort [Unknown]
  - Influenza like illness [Unknown]
